FAERS Safety Report 9325039 (Version 1)
Quarter: 2013Q2

REPORT INFORMATION
  Report Type: Report from Study
  Country: US (occurrence: US)
  Receive Date: 20130603
  Receipt Date: 20130603
  Transmission Date: 20140414
  Serious: Yes (Death)
  Sender: FDA-Public Use
  Company Number: US-BAXTER-2013BAX020616

PATIENT
  Age: 20 Year
  Sex: Male

DRUGS (3)
  1. CYCLOPHOSPHAMIDE FOR INJECTION, USP [Suspect]
     Indication: APLASTIC ANAEMIA
     Route: 065
  2. FLUDARABINE [Suspect]
     Indication: APLASTIC ANAEMIA
     Route: 065
  3. ATG [Suspect]
     Indication: APLASTIC ANAEMIA
     Route: 065

REACTIONS (1)
  - Multi-organ failure [Fatal]
